FAERS Safety Report 6705759-6 (Version None)
Quarter: 2010Q2

REPORT INFORMATION
  Report Type: 
  Country: None (occurrence: None)
  Receive Date: 20100503
  Receipt Date: 20080922
  Transmission Date: 20101027
  Serious: Yes (Other)
  Sender: FDA-Public Use
  Company Number: DK-BAYER-200827734GPV

PATIENT
  Age: 34 Year
  Sex: Female

DRUGS (1)
  1. YASMIN [Suspect]
     Indication: ORAL CONTRACEPTION
     Route: 048
     Dates: start: 20070201, end: 20070608

REACTIONS (10)
  - ANGINA PECTORIS [None]
  - CHEST PAIN [None]
  - DEPRESSED MOOD [None]
  - ECZEMA [None]
  - HEADACHE [None]
  - LIBIDO DECREASED [None]
  - MENSTRUATION IRREGULAR [None]
  - MIGRAINE [None]
  - OEDEMA [None]
  - PAIN [None]
